FAERS Safety Report 13209339 (Version 2)
Quarter: 2017Q1

REPORT INFORMATION
  Report Type: Spontaneous
  Country: US (occurrence: US)
  Receive Date: 20170209
  Receipt Date: 20170228
  Transmission Date: 20170428
  Serious: Yes (Other)
  Sender: FDA-Public Use
  Company Number: US-SMITH AND NEPHEW, INC-2017SMT00039

PATIENT
  Age: 60 Year
  Sex: Female
  Weight: 79.37 kg

DRUGS (6)
  1. REGRANEX [Suspect]
     Active Substance: BECAPLERMIN
     Indication: WOUND
     Dosage: UNK, 2X/DAY
     Route: 061
     Dates: start: 201612, end: 20170106
  2. NOVOLIN [Concomitant]
     Active Substance: INSULIN HUMAN
     Dosage: 20 U, 4X/DAY (AT EVERY MEAL)
  3. UNSPECIFIED HIGH BLOOD MEDICATION [Concomitant]
  4. VITAMINS [Concomitant]
     Active Substance: VITAMINS
  5. REGRANEX [Suspect]
     Active Substance: BECAPLERMIN
     Dosage: UNK
     Dates: start: 20170120
  6. LANTUS [Concomitant]
     Active Substance: INSULIN GLARGINE
     Dosage: 60 UNK, 3X/DAY

REACTIONS (5)
  - Wound haemorrhage [Unknown]
  - Inappropriate schedule of drug administration [Unknown]
  - Osteomyelitis [Unknown]
  - Wound complication [Not Recovered/Not Resolved]
  - Wound infection staphylococcal [Not Recovered/Not Resolved]

NARRATIVE: CASE EVENT DATE: 201612
